FAERS Safety Report 6192661-4 (Version None)
Quarter: 2009Q2

REPORT INFORMATION
  Report Type: 
  Country: None (occurrence: None)
  Receive Date: 20090518
  Receipt Date: 20090507
  Transmission Date: 20091009
  Serious: Yes (Other)
  Sender: FDA-Public Use
  Company Number: JP-BAYER-200911418BYL

PATIENT
  Age: 62 Year
  Sex: Male
  Weight: 75 kg

DRUGS (8)
  1. FLUDARA [Suspect]
     Indication: ACUTE MYELOID LEUKAEMIA
     Dosage: AS USED: 25 MG/M2  UNIT DOSE: 50 MG
     Route: 042
     Dates: start: 20080717, end: 20080721
  2. ALKERAN [Concomitant]
     Indication: ACUTE MYELOID LEUKAEMIA
     Dosage: AS USED: 70 MG
     Route: 042
     Dates: start: 20080718, end: 20080719
  3. ALKERAN [Concomitant]
     Dosage: AS USED: 35 MG
     Route: 042
     Dates: start: 20080721, end: 20080721
  4. METHOTREXATE [Concomitant]
     Dosage: AS USED: 8.75 MG
     Route: 041
     Dates: start: 20080724, end: 20080724
  5. METHOTREXATE [Concomitant]
     Dosage: AS USED: 8.75 MG
     Route: 041
     Dates: start: 20080729, end: 20080729
  6. METHOTREXATE [Concomitant]
     Dosage: AS USED: 8.75 MG
     Route: 041
     Dates: start: 20080726, end: 20080726
  7. CONCENTRATED RED CELLS [Concomitant]
     Indication: PACKED RED BLOOD CELL TRANSFUSION
     Route: 042
     Dates: start: 20080718, end: 20080812
  8. PLATELETS [Concomitant]
     Indication: PLATELET TRANSFUSION
     Route: 042
     Dates: start: 20080725, end: 20080806

REACTIONS (3)
  - ACUTE GRAFT VERSUS HOST DISEASE [None]
  - CYTOMEGALOVIRUS VIRAEMIA [None]
  - PNEUMONIA [None]
